FAERS Safety Report 23830510 (Version 1)
Quarter: 2024Q2

REPORT INFORMATION
  Report Type: Spontaneous
  Country: US (occurrence: None)
  Receive Date: 20240507
  Receipt Date: 20240507
  Transmission Date: 20240715
  Serious: Yes (Hospitalization)
  Sender: FDA-Public Use
  Company Number: None

PATIENT
  Age: 72 Year
  Sex: Male
  Weight: 97 kg

DRUGS (2)
  1. APIXABAN [Suspect]
     Active Substance: APIXABAN
     Indication: Atrial fibrillation
     Dosage: FREQUENCY : TWICE A DAY;?
     Route: 048
     Dates: start: 20210630, end: 20220923
  2. ASPIRIN 81MG [Suspect]
     Active Substance: ASPIRIN
     Indication: Surgery
     Dosage: FREQUENCY : TWICE A DAY;?
     Route: 048
     Dates: start: 20220916, end: 20220916

REACTIONS (6)
  - Anaemia [None]
  - Dizziness [None]
  - Hypotension [None]
  - Haemorrhage [None]
  - Faeces discoloured [None]
  - Duodenal ulcer [None]

NARRATIVE: CASE EVENT DATE: 20220923
